FAERS Safety Report 6243626-5 (Version None)
Quarter: 2009Q2

REPORT INFORMATION
  Report Type: 
  Country: None (occurrence: None)
  Receive Date: 20090622
  Receipt Date: 20090611
  Transmission Date: 20091009
  Serious: Yes (Other)
  Sender: FDA-Public Use
  Company Number: 2009JP002369

PATIENT
  Age: 88 Year
  Sex: Male
  Weight: 46.5 kg

DRUGS (7)
  1. HARNAL(TAMSULOSIN) ORODISPERSIBLE CR TABLET [Suspect]
     Indication: BENIGN PROSTATIC HYPERPLASIA
     Dosage: 0.2 MG, UID/QD, ORAL
     Route: 048
     Dates: start: 20071031, end: 20090313
  2. SOLIFENACIN BLINDED(CODE NOT BROKEN) TABLET, UNKNOWN [Suspect]
     Indication: HYPERTONIC BLADDER
     Dosage: 2 DF, UID/QD, ORAL
     Route: 048
     Dates: start: 20090313, end: 20090313
  3. ITOROL(ISOSORBIDE MONONITRATE) TABLET [Suspect]
     Indication: ANGINA PECTORIS
     Dosage: 20 MG, BID, ORAL
     Route: 048
  4. CONIEL(BENIDIPINE HYDROCHLORIDE) TABLET [Suspect]
     Indication: HYPERTENSION
     Dosage: 2 MG, BID, ORAL
     Route: 048
  5. BAYASPIRIN TABLET [Concomitant]
  6. CRAVIT (LEVOFLOXACIN) EYE DROP [Concomitant]
  7. FLUMETHOLONE (FLUOROMETHOLONE) EYE DROP [Concomitant]

REACTIONS (4)
  - LOSS OF CONSCIOUSNESS [None]
  - ORTHOSTATIC HYPOTENSION [None]
  - PRESYNCOPE [None]
  - SUPRAVENTRICULAR EXTRASYSTOLES [None]
